FAERS Safety Report 14282997 (Version 6)
Quarter: 2018Q3

REPORT INFORMATION
  Report Type: Report from Study
  Country: DE (occurrence: DE)
  Receive Date: 20171213
  Receipt Date: 20180723
  Transmission Date: 20181010
  Serious: Yes (Hospitalization)
  Sender: FDA-Public Use
  Company Number: DE-TEVA-2017-DE-831040

PATIENT
  Age: 60 Year
  Sex: Female
  Weight: 93 kg

DRUGS (11)
  1. DECORTIN [Concomitant]
     Active Substance: PREDNISONE
     Indication: PULMONARY FIBROSIS
     Route: 065
  2. VARGATEF [Suspect]
     Active Substance: NINTEDANIB
     Indication: NON-SMALL CELL LUNG CANCER
     Route: 048
     Dates: start: 20150318, end: 20150419
  3. ACC 600MG [Concomitant]
     Indication: ATRIAL FIBRILLATION
     Dosage: 1 DOSAGE FORMS DAILY;
     Route: 065
  4. DOCETAXEL. [Suspect]
     Active Substance: DOCETAXEL
     Indication: LUNG ADENOCARCINOMA
     Dosage: 100MG/M2 BSA
     Route: 042
  5. DOCETAXEL. [Suspect]
     Active Substance: DOCETAXEL
     Indication: NON-SMALL CELL LUNG CANCER
     Dosage: UNIT DOSE: 100MG/M2 BSA; DAILY DOSE: 192MG
     Route: 042
     Dates: start: 20150318, end: 20150408
  6. VARGATEF [Suspect]
     Active Substance: NINTEDANIB
     Indication: ADENOCARCINOMA
     Dosage: DAILY DOSE: 400 MG MILLIGRAM(S) EVERY DAY
     Route: 048
     Dates: start: 20150319, end: 20150416
  7. VARGATEF [Suspect]
     Active Substance: NINTEDANIB
     Indication: LUNG ADENOCARCINOMA
     Dosage: 200 MILLIGRAM DAILY;
     Route: 048
     Dates: end: 20150630
  8. TROMCARDIN [Concomitant]
     Active Substance: MAGNESIUM ASPARTATE\POTASSIUM ASPARTATE
     Indication: ATRIAL FIBRILLATION
     Route: 065
  9. DOCETAXEL. [Suspect]
     Active Substance: DOCETAXEL
     Indication: ADENOCARCINOMA
  10. BISOPROLOL [Concomitant]
     Active Substance: BISOPROLOL
     Indication: HYPERTENSION
     Dosage: 1 DOSAGE FORMS DAILY;
     Route: 065
  11. NOVAMIN [Concomitant]
     Indication: PROPHYLAXIS
     Dosage: 500 MILLIGRAM DAILY;
     Route: 048
     Dates: start: 20140708

REACTIONS (6)
  - Diarrhoea [Recovered/Resolved]
  - Oedema peripheral [Unknown]
  - Stomatitis [Recovered/Resolved]
  - Diverticulitis [Recovered/Resolved with Sequelae]
  - Large intestine perforation [Recovered/Resolved]
  - Abdominal pain [Recovered/Resolved]

NARRATIVE: CASE EVENT DATE: 20150320
